FAERS Safety Report 8953154 (Version 2)
Quarter: 2013Q1

REPORT INFORMATION
  Report Type: Spontaneous
  Country: CA (occurrence: CA)
  Receive Date: 20121205
  Receipt Date: 20130213
  Transmission Date: 20140127
  Serious: Yes (Other)
  Sender: FDA-Public Use
  Company Number: CA-AMGEN-CANSP2012073526

PATIENT
  Age: 73 Year
  Sex: Female

DRUGS (8)
  1. ENBREL [Suspect]
     Indication: PSORIATIC ARTHROPATHY
     Dosage: UNK
     Dates: start: 20120705, end: 20121004
  2. VALACIKLOVIR [Concomitant]
     Dosage: 500 MG, TWO TABLET PER DAY
  3. LIPITOR [Concomitant]
     Dosage: 20 MG, UNK
  4. VALSARTAN [Concomitant]
     Dosage: 160 MG, UNK
  5. INDAPAMID [Concomitant]
     Dosage: 1.25 MG, UNK
  6. BISOPROLOL [Concomitant]
     Dosage: 5 MG, UNK
  7. ASPIRIN [Concomitant]
     Dosage: UNK
  8. DILTIAZEM [Concomitant]
     Dosage: 360 MG, UNK

REACTIONS (8)
  - Breast cancer [Recovering/Resolving]
  - Breast mass [Recovering/Resolving]
  - Breast tenderness [Recovered/Resolved]
  - Breast pain [Recovering/Resolving]
  - Injection site erythema [Recovered/Resolved]
  - Injection site pruritus [Recovered/Resolved]
  - Psoriatic arthropathy [Recovered/Resolved]
  - Arthralgia [Recovered/Resolved]
